FAERS Safety Report 5348474-6 (Version None)
Quarter: 2007Q2

REPORT INFORMATION
  Report Type: 
  Country: None (occurrence: None)
  Receive Date: 20070605
  Receipt Date: 20070522
  Transmission Date: 20071010
  Serious: Yes (Hospitalization)
  Sender: FDA-Public Use
  Company Number: E2020-01106-SPO-AU

PATIENT
  Age: 77 Year
  Sex: Female

DRUGS (2)
  1. ARICEPT [Suspect]
     Indication: DEMENTIA ALZHEIMER'S TYPE
     Dosage: 5 MG, 1 IN 1 D, ORAL
     Route: 048
     Dates: start: 20070201, end: 20070313
  2. AVAPRO [Concomitant]

REACTIONS (3)
  - AGITATION [None]
  - ANXIETY [None]
  - PANIC ATTACK [None]
